FAERS Safety Report 7778332-9 (Version None)
Quarter: 2011Q3

REPORT INFORMATION
  Report Type: 
  Country: None (occurrence: None)
  Receive Date: 20110926
  Receipt Date: 20110913
  Transmission Date: 20111222
  Serious: Yes (Other)
  Sender: FDA-Public Use
  Company Number: US-BAYER-2011-013517

PATIENT
  Age: 52 Year
  Sex: Female
  Weight: 63 kg

DRUGS (5)
  1. YASMIN [Suspect]
     Dosage: UNK
     Dates: start: 20080501
  2. YAZ [Suspect]
     Dosage: UNK
     Dates: start: 20080501, end: 20090101
  3. SYNTHROID [Concomitant]
     Indication: HYPOTHYROIDISM
  4. MIDRIN [Concomitant]
  5. ASPIRIN [Concomitant]

REACTIONS (7)
  - TRANSIENT ISCHAEMIC ATTACK [None]
  - PAIN [None]
  - FEAR [None]
  - ANXIETY [None]
  - INJURY [None]
  - EMOTIONAL DISTRESS [None]
  - DEPRESSION [None]
